FAERS Safety Report 19100427 (Version 4)
Quarter: 2021Q3

REPORT INFORMATION
  Report Type: Report from Study
  Country: CO (occurrence: CO)
  Receive Date: 20210407
  Receipt Date: 20210803
  Transmission Date: 20211014
  Serious: Yes (Other)
  Sender: FDA-Public Use
  Company Number: CO-TAKEDA-2020TUS040609

PATIENT
  Age: 31 Year
  Sex: Female
  Weight: 60 kg

DRUGS (1)
  1. VEDOLIZUMAB [Suspect]
     Active Substance: VEDOLIZUMAB
     Indication: COLITIS ULCERATIVE
     Dosage: 300 MILLIGRAM
     Route: 042
     Dates: start: 20190911

REACTIONS (11)
  - Stillbirth [Unknown]
  - Headache [Recovering/Resolving]
  - Pregnancy [Recovered/Resolved]
  - Insomnia [Recovered/Resolved]
  - Weight decreased [Unknown]
  - Rhinorrhoea [Recovering/Resolving]
  - Herpes zoster [Recovering/Resolving]
  - Weight increased [Unknown]
  - Malaise [Recovering/Resolving]
  - Stress at work [Unknown]
  - Discomfort [Recovering/Resolving]

NARRATIVE: CASE EVENT DATE: 20200606
